FAERS Safety Report 9586501 (Version 1)
Quarter: 2013Q3

REPORT INFORMATION
  Report Type: Spontaneous
  Country: AU (occurrence: None)
  Receive Date: 20130926
  Receipt Date: 20130926
  Transmission Date: 20140515
  Serious: Yes (Hospitalization)
  Sender: FDA-Public Use
  Company Number: 2013-01453

PATIENT
  Age: 41 Year
  Sex: Male

DRUGS (5)
  1. VALPROATE SODIUM [Suspect]
     Indication: PRODUCT USED FOR UNKNOWN INDICATION
  2. QUETIAPINE [Suspect]
  3. FLUOXETINE [Suspect]
  4. CARBAMAZEPINE [Suspect]
  5. OXAZEPAM [Suspect]

REACTIONS (2)
  - Vasoplegia syndrome [None]
  - Toxicity to various agents [None]
